FAERS Safety Report 10082625 (Version 1)
Quarter: 2014Q2

REPORT INFORMATION
  Report Type: Spontaneous
  Country: IN (occurrence: IN)
  Receive Date: 20140416
  Receipt Date: 20140416
  Transmission Date: 20141212
  Serious: Yes (Death)
  Sender: FDA-Public Use
  Company Number: IN-MYLANLABS-2014S1008122

PATIENT
  Age: 10 Year
  Sex: Male

DRUGS (3)
  1. ATGAM [Suspect]
     Indication: APLASTIC ANAEMIA
     Dosage: 40 MG/KG/DAY
     Route: 065
  2. PREDNISOLONE [Suspect]
     Indication: APLASTIC ANAEMIA
     Dosage: 1 MG/KG
     Route: 065
  3. TRAMADOL [Concomitant]
     Indication: PAIN
     Route: 065

REACTIONS (4)
  - Posterior reversible encephalopathy syndrome [Fatal]
  - Cardiac arrest [Fatal]
  - Subarachnoid haemorrhage [Unknown]
  - Haemorrhage intracranial [Unknown]
